FAERS Safety Report 6497008-1 (Version None)
Quarter: 2009Q4

REPORT INFORMATION
  Report Type: 
  Country: None (occurrence: None)
  Receive Date: 20091215
  Receipt Date: 20081222
  Transmission Date: 20100525
  Serious: No
  Sender: FDA-Public Use
  Company Number: A0761397A

PATIENT
  Sex: Male

DRUGS (4)
  1. AVODART [Suspect]
     Indication: DRUG USE FOR UNKNOWN INDICATION
     Route: 048
  2. DETROL [Suspect]
  3. FLOMAX [Suspect]
  4. UNKNOWN [Concomitant]

REACTIONS (3)
  - DRUG INEFFECTIVE [None]
  - LETHARGY [None]
  - POOR QUALITY SLEEP [None]
